FAERS Safety Report 7703607-9 (Version None)
Quarter: 2011Q3

REPORT INFORMATION
  Report Type: 
  Country: None (occurrence: None)
  Receive Date: 20110823
  Receipt Date: 20110819
  Transmission Date: 20111222
  Serious: Yes (Death, Hospitalization, Other)
  Sender: FDA-Public Use
  Company Number: PHFR2011GB02324

PATIENT
  Sex: Male
  Weight: 83 kg

DRUGS (8)
  1. CLOZAPINE [Suspect]
     Indication: SCHIZOPHRENIA
     Route: 048
     Dates: start: 19960101
  2. SULPIRIDE [Concomitant]
     Dosage: 800 MG, BID
  3. VALPROATE SODIUM [Concomitant]
     Dosage: 1000 MG, BID
  4. HYOSCINE HYDROBROMIDE [Concomitant]
     Dosage: 300 UG, TID
  5. LORAZEPAM [Concomitant]
     Dosage: 4 MG, QD
     Dates: end: 20110326
  6. HALOPERIDOL [Concomitant]
     Dosage: 10 MG, QD
     Dates: end: 20110329
  7. CLOZAPINE [Suspect]
     Dosage: 200 MG + 200 MG + 300 MG
     Route: 048
     Dates: start: 20060220
  8. ESCITALOPRAM [Concomitant]
     Dosage: 20 MG, QD

REACTIONS (44)
  - SUDDEN DEATH [None]
  - DISTURBANCE IN ATTENTION [None]
  - DEPRESSED LEVEL OF CONSCIOUSNESS [None]
  - RHINORRHOEA [None]
  - BLOOD CREATINE PHOSPHOKINASE INCREASED [None]
  - HEPATIC CONGESTION [None]
  - SYNCOPE [None]
  - CONSTIPATION [None]
  - ANTIPSYCHOTIC DRUG LEVEL INCREASED [None]
  - EOSINOPHILIA [None]
  - UPPER RESPIRATORY TRACT CONGESTION [None]
  - MENTAL DISORDER [None]
  - AGGRESSION [None]
  - UPPER RESPIRATORY TRACT INFECTION [None]
  - OBSESSIVE-COMPULSIVE DISORDER [None]
  - COMMUNICATION DISORDER [None]
  - SUDDEN CARDIAC DEATH [None]
  - CARDIAC HYPERTROPHY [None]
  - RENAL VESSEL DISORDER [None]
  - RESTRICTIVE CARDIOMYOPATHY [None]
  - PERICARDITIS ADHESIVE [None]
  - VERBAL ABUSE [None]
  - BLOOD ALKALINE PHOSPHATASE INCREASED [None]
  - LOWER RESPIRATORY TRACT INFECTION [None]
  - SERUM FERRITIN INCREASED [None]
  - VITAMIN B12 INCREASED [None]
  - RED BLOOD CELL SEDIMENTATION RATE INCREASED [None]
  - OEDEMA PERIPHERAL [None]
  - LACRIMATION INCREASED [None]
  - PLEURAL EFFUSION [None]
  - PLEURAL ADHESION [None]
  - PYREXIA [None]
  - PSYCHOTIC DISORDER [None]
  - CATATONIA [None]
  - SEXUALLY INAPPROPRIATE BEHAVIOUR [None]
  - PHYSICAL ASSAULT [None]
  - BLOOD IMMUNOGLOBULIN G INCREASED [None]
  - MALAISE [None]
  - C-REACTIVE PROTEIN INCREASED [None]
  - PULMONARY CONGESTION [None]
  - PULMONARY OEDEMA [None]
  - PNEUMONIA [None]
  - SOMNOLENCE [None]
  - SEXUAL ABUSE [None]
